FAERS Safety Report 11576426 (Version 1)
Quarter: 2015Q3

REPORT INFORMATION
  Report Type: Spontaneous
  Country: US (occurrence: US)
  Receive Date: 20150916
  Receipt Date: 20150916
  Transmission Date: 20151125
  Serious: No
  Sender: FDA-Public Use
  Company Number: US-ELI_LILLY_AND_COMPANY-US201305004949

PATIENT
  Age: 29 Year
  Sex: Female

DRUGS (3)
  1. NOVOLOG [Concomitant]
     Active Substance: INSULIN ASPART
     Dosage: UNK
  2. HUMALOG [Concomitant]
     Active Substance: INSULIN LISPRO
     Dosage: UNK, PRN
  3. HUMALOG [Suspect]
     Active Substance: INSULIN LISPRO
     Indication: TYPE 1 DIABETES MELLITUS
     Dosage: 50 U, PRN
     Route: 058

REACTIONS (5)
  - Underdose [Unknown]
  - Weight decreased [Unknown]
  - Therapeutic response decreased [Unknown]
  - Blood glucose increased [Recovered/Resolved]
  - Infusion site haemorrhage [Unknown]

NARRATIVE: CASE EVENT DATE: 20130501
